FAERS Safety Report 6286752-7 (Version None)
Quarter: 2009Q3

REPORT INFORMATION
  Report Type: 
  Country: None (occurrence: None)
  Receive Date: 20090728
  Receipt Date: 20090720
  Transmission Date: 20100115
  Serious: Yes (Other)
  Sender: FDA-Public Use
  Company Number: US-BAYER-200912274BCC

PATIENT
  Sex: Male
  Weight: 69 kg

DRUGS (5)
  1. ASPIRIN [Suspect]
     Indication: ISCHAEMIC HEART DISEASE PROPHYLAXIS
     Dosage: TOTAL DAILY DOSE: 325 MG  UNIT DOSE: 325 MG
     Route: 048
  2. ASPIRIN [Suspect]
     Dosage: SOMETIMES CONSUMER TOOK MORE ASPIRIN FOR PAIN
     Route: 048
  3. CENTRUM SILVER [Concomitant]
     Route: 065
  4. PROTONIX [Concomitant]
     Route: 065
  5. UNKNOWN VITAMIN C [Concomitant]
     Route: 065

REACTIONS (3)
  - ACQUIRED OESOPHAGEAL WEB [None]
  - MOUTH HAEMORRHAGE [None]
  - SKIN DISCOLOURATION [None]
